FAERS Safety Report 9167361 (Version 1)
Quarter: 2013Q1

REPORT INFORMATION
  Report Type: Spontaneous
  Country: AU (occurrence: None)
  Receive Date: 20130304
  Receipt Date: 20130304
  Transmission Date: 20140127
  Serious: Yes (Hospitalization)
  Sender: FDA-Public Use
  Company Number: 2013P1002569

PATIENT
  Sex: Female
  Weight: 2.57 kg

DRUGS (2)
  1. MIDAZOLAM HCL [Suspect]
     Indication: AGITATION
     Route: 064
  2. MORPHINE [Suspect]
     Indication: AGITATION
     Route: 064

REACTIONS (9)
  - Bladder perforation [None]
  - Foetal disorder [None]
  - Foetal hypokinesia [None]
  - Caesarean section [None]
  - Ascites [None]
  - Respiratory distress [None]
  - Neonatal respiratory distress syndrome [None]
  - Oliguria [None]
  - Maternal drugs affecting foetus [None]
